FAERS Safety Report 4866509-1 (Version None)
Quarter: 2005Q4

REPORT INFORMATION
  Report Type: 
  Country: None (occurrence: None)
  Receive Date: 20051227
  Receipt Date: 20051130
  Transmission Date: 20060501
  Serious: Yes (Other)
  Sender: FDA-Public Use
  Company Number: 2005AP06572

PATIENT
  Age: 23193 Day
  Sex: Female
  Weight: 43 kg

DRUGS (3)
  1. IRESSA [Suspect]
     Indication: NON-SMALL CELL LUNG CANCER
     Route: 048
     Dates: start: 20051107, end: 20051114
  2. PACLITAXEL [Concomitant]
     Dosage: 4 COURSES
     Dates: start: 20050401, end: 20051001
  3. CARBOPLATIN [Concomitant]
     Dates: start: 20050401, end: 20051001

REACTIONS (5)
  - ABDOMINAL PAIN [None]
  - COUGH [None]
  - DIARRHOEA [None]
  - PYREXIA [None]
  - VOMITING [None]
